FAERS Safety Report 8971500 (Version 5)
Quarter: 2014Q1

REPORT INFORMATION
  Report Type: Spontaneous
  Country: GB (occurrence: GB)
  Receive Date: 20121218
  Receipt Date: 20140211
  Transmission Date: 20141002
  Serious: Yes (Hospitalization, Other)
  Sender: FDA-Public Use
  Company Number: PHFR2012GB005465

PATIENT
  Age: 42 Year
  Sex: Male

DRUGS (3)
  1. CLOZARIL [Suspect]
     Indication: SCHIZOPHRENIA
     Dosage: UNK
     Route: 048
     Dates: start: 19980715
  2. CLOZARIL [Suspect]
     Dosage: UNK
     Route: 048
     Dates: start: 20130722
  3. CLOZARIL [Suspect]
     Dosage: UNK (DOSE IN ERROR)
     Route: 048
     Dates: start: 20140205

REACTIONS (7)
  - Acute myeloid leukaemia [Recovering/Resolving]
  - Infection [Unknown]
  - Neutrophil count decreased [Recovered/Resolved]
  - Malaise [Unknown]
  - Drug administration error [Unknown]
  - Somnolence [Unknown]
  - Platelet count decreased [Recovered/Resolved]
